FAERS Safety Report 15330768 (Version 6)
Quarter: 2019Q1

REPORT INFORMATION
  Report Type: Report from Study
  Country: US (occurrence: US)
  Receive Date: 20180829
  Receipt Date: 20190201
  Transmission Date: 20190417
  Serious: Yes (Hospitalization, Other)
  Sender: FDA-Public Use
  Company Number: PHHY2018US081495

PATIENT
  Sex: Female

DRUGS (1)
  1. GILENYA [Suspect]
     Active Substance: FINGOLIMOD HYDROCHLORIDE
     Indication: MULTIPLE SCLEROSIS
     Dosage: UNK
     Route: 048

REACTIONS (9)
  - Insomnia [Unknown]
  - Hallucination [Unknown]
  - Multiple sclerosis relapse [Unknown]
  - Spinal cord injury [Recovered/Resolved]
  - Tremor [Unknown]
  - Dizziness [Unknown]
  - Dyspnoea [Unknown]
  - Movement disorder [Unknown]
  - Anxiety [Unknown]
